FAERS Safety Report 22671261 (Version 5)
Quarter: 2025Q2

REPORT INFORMATION
  Report Type: Spontaneous
  Country: PL (occurrence: PL)
  Receive Date: 20230705
  Receipt Date: 20250603
  Transmission Date: 20250716
  Serious: Yes (Hospitalization, Other)
  Sender: AUROBINDO
  Company Number: PL-TEVA-2023-PL-2898996

PATIENT
  Age: 26 Year
  Sex: Female

DRUGS (16)
  1. FENTANYL [Suspect]
     Active Substance: FENTANYL
     Indication: Neuralgia
     Dosage: 150 MICROGRAM, EVERY HOUR (150 ?G/H EVERY 3 DAYS)
     Route: 062
  2. FENTANYL [Suspect]
     Active Substance: FENTANYL
     Dosage: 300 MICROGRAM, EVERY HOUR (300 ?G EVERY 1 H INTRANASALLY TRANSMUCOSALLY)
     Route: 045
  3. IBUPROFEN [Suspect]
     Active Substance: IBUPROFEN
     Indication: Neuralgia
     Dosage: 400 MILLIGRAM, TWO TIMES A DAY
     Route: 065
  4. PAROXETINE [Suspect]
     Active Substance: PAROXETINE
     Indication: Product used for unknown indication
     Dosage: 40 MILLIGRAM, ONCE A DAY (40 MILLIGRAM DAILY; 1 X 40 MG IN THE MORNING)
     Route: 065
  5. CLONAZEPAM [Suspect]
     Active Substance: CLONAZEPAM
     Indication: Myoclonus
     Dosage: 0.5 MILLIGRAM, TWO TIMES A DAY
     Route: 065
  6. CLONAZEPAM [Suspect]
     Active Substance: CLONAZEPAM
     Indication: Polyneuropathy
     Route: 065
  7. PREDNISONE [Suspect]
     Active Substance: PREDNISONE
     Indication: Neuralgia
     Route: 065
  8. MORPHINE [Suspect]
     Active Substance: MORPHINE
     Indication: Product used for unknown indication
     Dosage: 30 MILLIGRAM, TWO TIMES A DAY
     Route: 065
  9. VALPROATE [Suspect]
     Active Substance: VALPROIC ACID
     Indication: Neuralgia
     Dosage: 300 MILLIGRAM, TWO TIMES A DAY
     Route: 065
  10. VALPROIC ACID [Suspect]
     Active Substance: VALPROIC ACID
     Indication: Polyneuropathy
     Route: 065
  11. AMITRIPTYLINE [Concomitant]
     Active Substance: AMITRIPTYLINE
     Indication: Product used for unknown indication
     Dosage: 50 MILLIGRAM, ONCE A DAY (50 MILLIGRAM DAILY; 50 MG AT BEDTIME)
     Route: 065
  12. GABAPENTIN [Concomitant]
     Active Substance: GABAPENTIN
     Indication: Neuralgia
     Dosage: 400 MILLIGRAM, 3 TIMES A DAY
     Route: 065
  13. GABAPENTIN [Concomitant]
     Active Substance: GABAPENTIN
     Dosage: 600 MILLIGRAM, ONCE A DAY
     Route: 065
  14. LEVETIRACETAM [Concomitant]
     Active Substance: LEVETIRACETAM
     Indication: Myoclonus
     Dosage: 100 MILLIGRAM, TWO TIMES A DAY
     Route: 065
  15. LEVETIRACETAM [Concomitant]
     Active Substance: LEVETIRACETAM
     Dosage: 800 MILLIGRAM, TWO TIMES A DAY
     Route: 065
  16. PIRACETAM [Concomitant]
     Active Substance: PIRACETAM
     Indication: Product used for unknown indication
     Dosage: 2400 MILLIGRAM, TWO TIMES A DAY
     Route: 065

REACTIONS (4)
  - Mitochondrial toxicity [Recovered/Resolved]
  - Abdominal pain [Recovering/Resolving]
  - Off label use [Unknown]
  - Product selection error [Recovered/Resolved]
